FAERS Safety Report 19570561 (Version 3)
Quarter: 2021Q3

REPORT INFORMATION
  Report Type: Spontaneous
  Country: US (occurrence: US)
  Receive Date: 20210715
  Receipt Date: 20210811
  Transmission Date: 20211014
  Serious: No
  Sender: FDA-Public Use
  Company Number: US-BAUSCH-BL-2021-021609

PATIENT
  Age: 57 Year
  Sex: Female
  Weight: 78.54 kg

DRUGS (2)
  1. XIFAXAN [Suspect]
     Active Substance: RIFAXIMIN
     Indication: IRRITABLE BOWEL SYNDROME
     Route: 048
     Dates: start: 20210607, end: 20210613
  2. XIFAXAN [Suspect]
     Active Substance: RIFAXIMIN
     Dosage: ANOTHER TWO WEEK COURSE
     Route: 048
     Dates: start: 202106

REACTIONS (6)
  - Diarrhoea [Recovering/Resolving]
  - Therapy interrupted [Unknown]
  - Pyrexia [Recovering/Resolving]
  - Disease recurrence [Recovering/Resolving]
  - Urinary tract infection [Recovering/Resolving]
  - Abdominal pain [Recovering/Resolving]

NARRATIVE: CASE EVENT DATE: 202106
